FAERS Safety Report 5296686-2 (Version None)
Quarter: 2007Q2

REPORT INFORMATION
  Report Type: 
  Country: None (occurrence: None)
  Receive Date: 20070413
  Receipt Date: 20070403
  Transmission Date: 20071010
  Serious: Yes (Disabling, Other)
  Sender: FDA-Public Use
  Company Number: NL-PFIZER INC-2007019226

PATIENT
  Sex: Female

DRUGS (1)
  1. CELEBREX [Suspect]
     Indication: MUSCULOSKELETAL CHEST PAIN
     Dosage: DAILY DOSE:200MG
     Route: 048
     Dates: start: 20060424, end: 20060427

REACTIONS (2)
  - COORDINATION ABNORMAL [None]
  - DISTURBANCE IN ATTENTION [None]
